FAERS Safety Report 7974486-X (Version None)
Quarter: 2011Q4

REPORT INFORMATION
  Report Type: 
  Country: None (occurrence: None)
  Receive Date: 20111213
  Receipt Date: 20111207
  Transmission Date: 20120403
  Serious: Yes (Other)
  Sender: FDA-Public Use
  Company Number: CHPA2011US017724

PATIENT
  Age: 71 Year
  Sex: Female

DRUGS (1)
  1. PHENYLEPHRINE HYDROCHLORIDE [Suspect]
     Dosage: UNK DF, UNK
     Route: 045

REACTIONS (5)
  - DIABETES MELLITUS [None]
  - BACTERIAL INFECTION [None]
  - CHRONIC OBSTRUCTIVE PULMONARY DISEASE [None]
  - EMPHYSEMA [None]
  - DYSPNOEA [None]
